FAERS Safety Report 5871671-8 (Version None)
Quarter: 2008Q3

REPORT INFORMATION
  Report Type: 
  Country: None (occurrence: None)
  Receive Date: 20080905
  Receipt Date: 20080822
  Transmission Date: 20090109
  Serious: Yes (Hospitalization)
  Sender: FDA-Public Use
  Company Number: JP-ELI_LILLY_AND_COMPANY-JP200808004158

PATIENT
  Age: 71 Year
  Sex: Male
  Weight: 65 kg

DRUGS (1)
  1. GEMZAR [Suspect]
     Indication: GALLBLADDER CANCER RECURRENT
     Dosage: 700 MG/M2, OTHER
     Route: 042
     Dates: start: 20060101, end: 20070501

REACTIONS (3)
  - ANOREXIA [None]
  - CHOLANGITIS [None]
  - NEUTROPHIL COUNT DECREASED [None]
